FAERS Safety Report 6001689-6 (Version None)
Quarter: 2008Q4

REPORT INFORMATION
  Report Type: 
  Country: None (occurrence: None)
  Receive Date: 20081215
  Receipt Date: 20081206
  Transmission Date: 20090506
  Serious: Yes (Hospitalization)
  Sender: FDA-Public Use
  Company Number: US-B.I. PHARMACEUTICALS,INC./RIDGEFIELD-2008-BP-18279BP

PATIENT
  Sex: Male

DRUGS (2)
  1. ZANTAC [Suspect]
     Indication: DYSPEPSIA
     Dosage: 150MG
     Route: 048
     Dates: start: 20081130
  2. PRILOSEC OTC [Concomitant]
     Indication: GASTRIC DISORDER
     Route: 048

REACTIONS (3)
  - ABDOMINAL DISCOMFORT [None]
  - ANAEMIA [None]
  - NAUSEA [None]
